FAERS Safety Report 17872653 (Version 3)
Quarter: 2020Q3

REPORT INFORMATION
  Report Type: Spontaneous
  Country: PT (occurrence: PT)
  Receive Date: 20200608
  Receipt Date: 20200717
  Transmission Date: 20201103
  Serious: Yes (Hospitalization)
  Sender: FDA-Public Use
  Company Number: NVSC2020PT158826

PATIENT
  Age: 50 Year
  Sex: Female

DRUGS (5)
  1. ACEMETACIN [Suspect]
     Active Substance: ACEMETACIN
     Indication: RHEUMATOID ARTHRITIS
     Dosage: UNK (AS NEEDED)
     Route: 065
  2. PREDNISOLONE. [Suspect]
     Active Substance: PREDNISOLONE
     Indication: RHEUMATOID ARTHRITIS
     Dosage: UNK
     Route: 065
  3. METHOTREXATE. [Suspect]
     Active Substance: METHOTREXATE
     Indication: RHEUMATOID ARTHRITIS
     Dosage: UNK
     Route: 065
  4. FUROSEMIDE. [Suspect]
     Active Substance: FUROSEMIDE
     Indication: PRODUCT USED FOR UNKNOWN INDICATION
     Dosage: UNK
     Route: 065
  5. SULFASALAZINE. [Suspect]
     Active Substance: SULFASALAZINE
     Indication: RHEUMATOID ARTHRITIS
     Dosage: UNK
     Route: 065

REACTIONS (7)
  - Deep vein thrombosis [Unknown]
  - Oedema [Unknown]
  - C-reactive protein increased [Unknown]
  - Erythema [Unknown]
  - Red blood cell sedimentation rate increased [Unknown]
  - Cellulitis [Unknown]
  - Peau d^orange [Unknown]
